FAERS Safety Report 9932084 (Version 2)
Quarter: 2014Q1

REPORT INFORMATION
  Report Type: Spontaneous
  Country: US (occurrence: US)
  Receive Date: 20140228
  Receipt Date: 20140228
  Transmission Date: 20141002
  Serious: No
  Sender: FDA-Public Use
  Company Number: US-ABBVIE-13P-163-1134635-00

PATIENT
  Age: 46 Year
  Sex: Male
  Weight: 50.85 kg

DRUGS (2)
  1. ANDROGEL [Suspect]
     Indication: BLOOD TESTOSTERONE DECREASED
     Dosage: 12.5 MILLIGRAMS DAILY
     Dates: start: 201303, end: 20130812
  2. ANDROGEL [Suspect]
     Dosage: 50 MILLIGRAMS DAILY
     Route: 061
     Dates: start: 20130813

REACTIONS (2)
  - Unevaluable event [Unknown]
  - Fatigue [Recovering/Resolving]
